FAERS Safety Report 21634743 (Version 2)
Quarter: 2023Q1

REPORT INFORMATION
  Report Type: Spontaneous
  Country: US (occurrence: US)
  Receive Date: 20221123
  Receipt Date: 20230216
  Transmission Date: 20230418
  Serious: Yes (Hospitalization)
  Sender: FDA-Public Use
  Company Number: US-JNJFOC-20221135979

PATIENT
  Sex: Male

DRUGS (1)
  1. XARELTO [Suspect]
     Active Substance: RIVAROXABAN
     Indication: Product used for unknown indication
     Dosage: STARTED XARELTO BACK IN 2013 OR 2014
     Route: 048

REACTIONS (6)
  - Pulmonary embolism [Unknown]
  - Malaise [Not Recovered/Not Resolved]
  - Chest discomfort [Unknown]
  - Dyspnoea [Unknown]
  - Product shape issue [Unknown]
  - Muscle strain [Unknown]
